FAERS Safety Report 13595288 (Version 2)
Quarter: 2017Q2

REPORT INFORMATION
  Report Type: Spontaneous
  Country: DE (occurrence: DE)
  Receive Date: 20170531
  Receipt Date: 20170609
  Transmission Date: 20170830
  Serious: Yes (Hospitalization)
  Sender: FDA-Public Use
  Company Number: DE-ACCORD-052068

PATIENT
  Age: 30 Year
  Sex: Female

DRUGS (4)
  1. METHADONE [Suspect]
     Active Substance: METHADONE HYDROCHLORIDE
     Indication: PRODUCT USED FOR UNKNOWN INDICATION
     Dosage: 29-MAY-2015:4 ML?30-MAY-2015 TO 15-JUN-2015:6 ML?16-JUN-2015:5 ML?17-JUN-2015:4 ML
     Route: 048
     Dates: start: 20150529
  2. MEDIKINET [Concomitant]
     Active Substance: METHYLPHENIDATE
     Dosage: FROM 12-JUN-2015 INCREASED TO 40 MG DAILY
     Route: 048
     Dates: start: 20150608, end: 20150611
  3. KEPPRA [Concomitant]
     Active Substance: LEVETIRACETAM
     Dosage: ON 08-JUN-2015 REDUCED TO 750 MG DAILY?ON 09-JUN-2015 TO 500 MG DAILY?ON 09-JUN-2015 TO 250 MG DAI
     Route: 048
     Dates: start: 20150529, end: 20150607
  4. QUETIAPINE. [Suspect]
     Active Substance: QUETIAPINE
     Indication: PRODUCT USED FOR UNKNOWN INDICATION
     Dosage: 25-50 MG
     Route: 048
     Dates: start: 20150607, end: 20150610

REACTIONS (2)
  - Drug ineffective [Unknown]
  - Blood prolactin increased [Recovering/Resolving]

NARRATIVE: CASE EVENT DATE: 20150611
